FAERS Safety Report 13251306 (Version 1)
Quarter: 2017Q1

REPORT INFORMATION
  Report Type: Report from Study
  Country: US (occurrence: US)
  Receive Date: 20170220
  Receipt Date: 20170220
  Transmission Date: 20170428
  Serious: Yes (Other)
  Sender: FDA-Public Use
  Company Number: US-BRISTOL-MYERS SQUIBB COMPANY-21085766

PATIENT
  Age: 48 Year
  Sex: Male

DRUGS (1)
  1. BELATACEPT [Suspect]
     Active Substance: BELATACEPT
     Indication: RENAL TRANSPLANT
     Dosage: 1000 MG, UNK
     Route: 042
     Dates: start: 20120907, end: 20121015

REACTIONS (3)
  - Renal transplant failure [Unknown]
  - Kidney fibrosis [Unknown]
  - Chronic allograft nephropathy [Unknown]

NARRATIVE: CASE EVENT DATE: 20140218
